FAERS Safety Report 6633771-4 (Version None)
Quarter: 2010Q1

REPORT INFORMATION
  Report Type: 
  Country: None (occurrence: None)
  Receive Date: 20100315
  Receipt Date: 20100301
  Transmission Date: 20100710
  Serious: Yes (Other)
  Sender: FDA-Public Use
  Company Number: ES-RANBAXY-2010RR-32278

PATIENT
  Age: 40 Year
  Sex: Male

DRUGS (1)
  1. LORAZEPAM [Suspect]
     Dosage: 2 MG, QD

REACTIONS (3)
  - DRUG INTERACTION [None]
  - MOVEMENT DISORDER [None]
  - SOMNOLENCE [None]
